FAERS Safety Report 6962031-7 (Version None)
Quarter: 2010Q3

REPORT INFORMATION
  Report Type: 
  Country: None (occurrence: None)
  Receive Date: 20100902
  Receipt Date: 20100715
  Transmission Date: 20110219
  Serious: Yes (Hospitalization)
  Sender: FDA-Public Use
  Company Number: US-BAYER-200942925NA

PATIENT
  Age: 34 Year
  Sex: Female
  Weight: 144 kg

DRUGS (31)
  1. YASMIN [Suspect]
     Indication: ORAL CONTRACEPTION
     Route: 048
     Dates: start: 20070124, end: 20080713
  2. BENICAR [Concomitant]
     Dates: start: 20070709, end: 20070808
  3. AMOXICILLIN [Concomitant]
     Dates: start: 20070127, end: 20070204
  4. CLINDAMYCIN [Concomitant]
     Dates: start: 20080130, end: 20080208
  5. NYSTATIN [Concomitant]
     Dates: start: 20070726, end: 20070802
  6. CIPROFLOXACIN [Concomitant]
     Indication: URINARY TRACT INFECTION
     Dates: start: 20080621, end: 20080701
  7. IMITREX [Concomitant]
     Dates: start: 19970101
  8. ASTHMA INHALERS [Concomitant]
     Dates: start: 19970101
  9. NORVASC [Concomitant]
     Dates: start: 20061105, end: 20090101
  10. POTASSIUM CHLORIDE [Concomitant]
  11. KLOR-CON [Concomitant]
     Dates: start: 20061215, end: 20090101
  12. SYNTHROID [Concomitant]
     Indication: THYROID DISORDER
  13. NORVASC [Concomitant]
     Indication: HYPERTENSION
     Dosage: 1 TABLET
     Route: 048
     Dates: start: 20060101, end: 20090101
  14. DIOVAN [Concomitant]
  15. NASACORT [Concomitant]
  16. SINGULAIR [Concomitant]
  17. NEXIUM [Concomitant]
     Indication: GASTROOESOPHAGEAL REFLUX DISEASE
     Dosage: TOTAL DAILY DOSE: 80 MG
  18. POTASSIUM CHLORIDE [Concomitant]
  19. INDAPAMIDE [Concomitant]
  20. ADVAIR DISKUS 100/50 [Concomitant]
  21. LEXAPRO [Concomitant]
  22. MULTI-VITAMINS [Concomitant]
  23. ALLEGRA [Concomitant]
  24. STOOL SOFTENER [Concomitant]
  25. METRONIDAZOLE [Concomitant]
  26. FLORA [Concomitant]
  27. ANTIBIOTICS [Concomitant]
     Indication: CHRONIC SINUSITIS
     Dosage: TWICE A WEEK
  28. PERCOCET [Concomitant]
  29. VICODIN [Concomitant]
  30. MAXAIR [Concomitant]
  31. SUCRALFATE [Concomitant]

REACTIONS (5)
  - ABDOMINAL PAIN [None]
  - ABDOMINAL PAIN UPPER [None]
  - CHOLECYSTITIS CHRONIC [None]
  - CHOLELITHIASIS [None]
  - DYSPEPSIA [None]
